FAERS Safety Report 9973352 (Version 3)
Quarter: 2014Q2

REPORT INFORMATION
  Report Type: Report from Study
  Country: US (occurrence: US)
  Receive Date: 20140306
  Receipt Date: 20140430
  Transmission Date: 20141212
  Serious: No
  Sender: FDA-Public Use
  Company Number: US-JNJFOC-20131215512

PATIENT
  Sex: Female
  Weight: 122.47 kg

DRUGS (9)
  1. REMICADE [Suspect]
     Indication: ANKYLOSING SPONDYLITIS
     Dosage: 4 VIALS
     Route: 042
     Dates: start: 201311
  2. REMICADE [Suspect]
     Indication: ANKYLOSING SPONDYLITIS
     Dosage: 4 VIALS
     Route: 042
  3. REMICADE [Suspect]
     Indication: ANKYLOSING SPONDYLITIS
     Dosage: 4 VIALS, MAINTAINANCE DOSE
     Route: 042
     Dates: start: 20140228
  4. METHOTREXATE [Suspect]
     Indication: PRODUCT USED FOR UNKNOWN INDICATION
     Route: 065
  5. BENADRYL [Concomitant]
     Indication: PREMEDICATION
     Dosage: ONE HOUR PRIOR TO START OF INFUSION
     Route: 048
     Dates: start: 20140228
  6. ZYRTEC [Concomitant]
     Indication: PREMEDICATION
     Dosage: 3 DAYS PRIOR TO THE INFUSION
     Route: 065
     Dates: start: 201402
  7. ZYRTEC [Concomitant]
     Indication: PREMEDICATION
     Dosage: ON DAY OF INFUSION
     Route: 065
     Dates: start: 20140228
  8. PEPCID [Concomitant]
     Indication: PREMEDICATION
     Dosage: AT BEDTIME NIGHT BEFORE INFUSION
     Route: 065
     Dates: start: 20140227
  9. TYLENOL [Concomitant]
     Indication: PREMEDICATION
     Dosage: ONE HOUR PRIOR TO THE INFUSION START
     Route: 065

REACTIONS (10)
  - Oropharyngeal pain [Recovering/Resolving]
  - Vertigo [Recovering/Resolving]
  - Herpes zoster [Recovering/Resolving]
  - Arthralgia [Recovering/Resolving]
  - Bronchitis [Recovering/Resolving]
  - Dyspnoea [Recovered/Resolved]
  - Upper respiratory tract infection [Recovered/Resolved]
  - Infusion related reaction [Recovered/Resolved]
  - Back pain [Recovering/Resolving]
  - Chest pain [Recovered/Resolved]
